FAERS Safety Report 5840054-9 (Version None)
Quarter: 2008Q3

REPORT INFORMATION
  Report Type: 
  Country: None (occurrence: None)
  Receive Date: 20080807
  Receipt Date: 20080807
  Transmission Date: 20090109
  Serious: Yes (Other)
  Sender: FDA-Public Use
  Company Number: None

PATIENT
  Age: 17 Year
  Sex: Male
  Weight: 64.9 kg

DRUGS (1)
  1. PENTAM [Suspect]
     Indication: ANTIFUNGAL PROPHYLAXIS
     Dosage: 250MG ONCE IV
     Route: 042
     Dates: start: 20080716

REACTIONS (2)
  - HYPOAESTHESIA FACIAL [None]
  - INFUSION RELATED REACTION [None]
